FAERS Safety Report 8271146-5 (Version None)
Quarter: 2012Q1

REPORT INFORMATION
  Report Type: 
  Country: None (occurrence: None)
  Receive Date: 20120327
  Receipt Date: 20100301
  Transmission Date: 20120608
  Serious: Yes (Hospitalization)
  Sender: FDA-Public Use
  Company Number: PHEH2009US18548

PATIENT
  Age: 32 Year
  Sex: Male

DRUGS (6)
  1. VITAMIN TAB [Concomitant]
  2. OSCAL (CALCIUM CARBONATE) [Concomitant]
  3. OXYCODONE HCL [Concomitant]
  4. CHEMOTHERAPEUTICS NOS (NO INGREDIENTS/SUBSTANCES) [Concomitant]
  5. PEPCID [Concomitant]
  6. GLEEVEC [Suspect]
     Indication: CHRONIC MYELOID LEUKAEMIA
     Dosage: 600 MG, QD, ORAL
     Route: 048
     Dates: start: 20091019, end: 20091113

REACTIONS (3)
  - PANCYTOPENIA [None]
  - BLAST CELL COUNT INCREASED [None]
  - DRUG INEFFECTIVE [None]
